FAERS Safety Report 6868542-7 (Version None)
Quarter: 2010Q3

REPORT INFORMATION
  Report Type: 
  Country: None (occurrence: None)
  Receive Date: 20100722
  Receipt Date: 20080602
  Transmission Date: 20110219
  Serious: No
  Sender: FDA-Public Use
  Company Number: US-PFIZER INC-2008047436

PATIENT
  Sex: Male
  Weight: 93.89 kg

DRUGS (6)
  1. CHANTIX [Suspect]
     Indication: SMOKING CESSATION THERAPY
     Dates: start: 20080315, end: 20080321
  2. LIPITOR [Concomitant]
  3. TRICOR [Concomitant]
     Indication: BLOOD TRIGLYCERIDES INCREASED
  4. VALIUM [Concomitant]
  5. FISH OIL [Concomitant]
  6. ACETYLSALICYLIC ACID [Concomitant]

REACTIONS (4)
  - DEPRESSION [None]
  - IRRITABILITY [None]
  - PERSONALITY CHANGE [None]
  - PSYCHOMOTOR HYPERACTIVITY [None]
